FAERS Safety Report 5136352-7 (Version None)
Quarter: 2006Q4

REPORT INFORMATION
  Report Type: 
  Country: None (occurrence: None)
  Receive Date: 20061027
  Receipt Date: 20060628
  Transmission Date: 20070319
  Serious: Yes (Other)
  Sender: FDA-Public Use
  Company Number: 2006AP02956

PATIENT
  Age: 80 Year
  Sex: Male

DRUGS (10)
  1. LOSEC [Suspect]
     Indication: GASTROOESOPHAGEAL REFLUX DISEASE
     Route: 048
     Dates: end: 20050901
  2. TELMISARTAN [Concomitant]
  3. COLCHICINE [Concomitant]
  4. DIGOXIN [Concomitant]
  5. FUROSEMIDE [Concomitant]
  6. ATORVASTATIN CALCIUM [Concomitant]
  7. WARFARIN SODIUM [Concomitant]
  8. METOPROLOL TARTRATE [Concomitant]
  9. ALLOPURINOL [Concomitant]
  10. LERCANIDIPINE [Concomitant]

REACTIONS (3)
  - HYPOCALCAEMIA [None]
  - HYPOMAGNESAEMIA [None]
  - HYPOPARATHYROIDISM [None]
